FAERS Safety Report 5847095-6 (Version None)
Quarter: 2008Q3

REPORT INFORMATION
  Report Type: 
  Country: None (occurrence: None)
  Receive Date: 20080815
  Receipt Date: 20080813
  Transmission Date: 20090109
  Serious: Yes (Death)
  Sender: FDA-Public Use
  Company Number: US-CELGENEUS-163-21880-08071260

PATIENT
  Sex: Female

DRUGS (1)
  1. REVLIMID (INTENT TO TREAT/NOT ON DRUG) [Suspect]
     Indication: LYMPHOMA
     Route: 048
     Dates: start: 20080718

REACTIONS (1)
  - NEOPLASM PROGRESSION [None]
